FAERS Safety Report 9401429 (Version 2)
Quarter: 2013Q3

REPORT INFORMATION
  Report Type: Report from Study
  Country: MX (occurrence: MX)
  Receive Date: 20130715
  Receipt Date: 20130725
  Transmission Date: 20140515
  Serious: Yes (Death, Disabling)
  Sender: FDA-Public Use
  Company Number: MX-ROCHE-1249039

PATIENT
  Age: 62 Year
  Sex: Female
  Weight: 80 kg

DRUGS (1)
  1. XELODA [Suspect]
     Indication: COLORECTAL CANCER
     Route: 048
     Dates: start: 201210, end: 201212

REACTIONS (2)
  - Disease progression [Fatal]
  - Pain [Not Recovered/Not Resolved]
